FAERS Safety Report 19957416 (Version 1)
Quarter: 2021Q4

REPORT INFORMATION
  Report Type: Report from Study
  Country: US (occurrence: US)
  Receive Date: 20211014
  Receipt Date: 20211014
  Transmission Date: 20220303
  Serious: Yes (Life-Threatening, Hospitalization, Other)
  Sender: FDA-Public Use
  Company Number: US-BRISTOL-MYERS SQUIBB COMPANY-BMS-2021-105368

PATIENT
  Age: 55 Year
  Sex: Female
  Weight: 53.97 kg

DRUGS (2)
  1. ABATACEPT [Suspect]
     Active Substance: ABATACEPT
     Indication: Osteoarthritis
     Dosage: 125 MG/ML
     Route: 058
     Dates: start: 2020
  2. ABATACEPT [Suspect]
     Active Substance: ABATACEPT
     Indication: Psoriatic arthropathy

REACTIONS (5)
  - Cerebral haemorrhage [Unknown]
  - Cerebral mass effect [Unknown]
  - Faecal disimpaction [Unknown]
  - Thrombosis [Unknown]
  - Weight decreased [Unknown]
